FAERS Safety Report 19681641 (Version 1)
Quarter: 2021Q3

REPORT INFORMATION
  Report Type: Report from Study
  Country: CN (occurrence: CN)
  Receive Date: 20210810
  Receipt Date: 20210810
  Transmission Date: 20211014
  Serious: Yes (Hospitalization)
  Sender: FDA-Public Use
  Company Number: CN-PFIZER INC-202100973308

PATIENT
  Age: 68 Year
  Sex: Male
  Weight: 63 kg

DRUGS (4)
  1. BLINDED THERAPY [Suspect]
     Active Substance: INVESTIGATIONAL PRODUCT
     Indication: SQUAMOUS CELL CARCINOMA OF LUNG
     Dosage: UNK
     Dates: start: 20210531, end: 20210625
  2. ANZATAX (PACLITAXEL) [Suspect]
     Active Substance: PACLITAXEL
     Indication: SQUAMOUS CELL CARCINOMA OF LUNG
     Dosage: 312 MG, ONCE EVERY 3 WEEKS
     Route: 041
     Dates: start: 20210601, end: 20210601
  3. BO BEI [Suspect]
     Active Substance: CARBOPLATIN
     Dosage: 650 MG, ONCE EVERY 3 WEEKS
     Route: 041
     Dates: start: 20210626, end: 20210626
  4. BO BEI [Suspect]
     Active Substance: CARBOPLATIN
     Indication: SQUAMOUS CELL CARCINOMA OF LUNG
     Dosage: 550 MG, ONCE EVERY 3 WEEKS
     Route: 041
     Dates: start: 20210601, end: 20210601

REACTIONS (2)
  - Alanine aminotransferase increased [Recovered/Resolved]
  - Condition aggravated [Recovered/Resolved]

NARRATIVE: CASE EVENT DATE: 20210620
